FAERS Safety Report 8484693 (Version 2)
Quarter: 2012Q4

REPORT INFORMATION
  Report Type: 
  Country: US (occurrence: US)
  Receive Date: 20120330
  Receipt Date: 20120830
  Transmission Date: 20130627
  Serious: Yes (Other)
  Sender: FDA-Public Use
  Company Number: US-B.I. PHARMACEUTICALS,INC./RIDGEFIELD-2012-BP-05775BP

PATIENT
  Sex: Male

DRUGS (7)
  1. PRADAXA [Suspect]
     Indication: ATRIAL FIBRILLATION
     Dosage: 300 mg
     Route: 048
     Dates: start: 20110721, end: 201203
  2. ASA [Concomitant]
  3. ACYCLOVIR [Concomitant]
  4. ZOLPIDEM [Concomitant]
  5. CRESTOR [Concomitant]
  6. METOPROLOL [Concomitant]
  7. LEVITRA [Concomitant]

REACTIONS (1)
  - Transient ischaemic attack [Recovered/Resolved]
